FAERS Safety Report 5912991-8 (Version None)
Quarter: 2008Q4

REPORT INFORMATION
  Report Type: 
  Country: None (occurrence: None)
  Receive Date: 20081006
  Receipt Date: 20080926
  Transmission Date: 20090506
  Serious: Yes (Hospitalization)
  Sender: FDA-Public Use
  Company Number: 2008-GWUS-0738

PATIENT
  Age: 56 Year
  Sex: Female

DRUGS (9)
  1. MAXAIR [Suspect]
     Dosage: 200 MCG-PRN-RESPIRATORY (INHALATION)
     Route: 055
  2. VALIUM [Suspect]
     Indication: SARCOIDOSIS
     Dosage: 10 MG-PRN-UNKNOWN
     Dates: start: 19930101
  3. ADVAIR DISKUS 100/50 [Suspect]
     Dosage: 500 MG - BID - UNKNOWN
  4. ALBUTEROL [Suspect]
  5. UNKNOWN STEROID [Suspect]
  6. PREDNISONE TAB [Suspect]
  7. LIPITOR [Concomitant]
  8. SINGULAIR [Suspect]
  9. EPINEPHRINE AUTO INJECTOR (EPIPEN) [Concomitant]

REACTIONS (8)
  - COUGH [None]
  - INSOMNIA [None]
  - JOINT STIFFNESS [None]
  - NAUSEA [None]
  - OXYGEN SATURATION ABNORMAL [None]
  - SARCOIDOSIS [None]
  - SURGERY [None]
  - TREMOR [None]
